FAERS Safety Report 15478024 (Version 1)
Quarter: 2018Q4

REPORT INFORMATION
  Report Type: Spontaneous
  Country: US (occurrence: US)
  Receive Date: 20181002
  Receipt Date: 20181002
  Transmission Date: 20190205
  Serious: No
  Sender: FDA-Public Use
  Company Number: None

PATIENT
  Age: 69 Year
  Sex: Male

DRUGS (1)
  1. DOFETILIDE 0.25MG MAYNE PHARMA [Suspect]
     Active Substance: DOFETILIDE
     Indication: HYPOPHARYNGEAL CANCER
     Route: 048
     Dates: start: 20170908

REACTIONS (2)
  - Amnesia [None]
  - Infection [None]

NARRATIVE: CASE EVENT DATE: 201809
